FAERS Safety Report 14449441 (Version 7)
Quarter: 2019Q1

REPORT INFORMATION
  Report Type: Report from Study
  Country: US (occurrence: US)
  Receive Date: 20180127
  Receipt Date: 20190329
  Transmission Date: 20190417
  Serious: No
  Sender: FDA-Public Use
  Company Number: PHHY2018US009253

PATIENT
  Age: 38 Year
  Sex: Female

DRUGS (2)
  1. GILENYA [Suspect]
     Active Substance: FINGOLIMOD HYDROCHLORIDE
     Indication: MULTIPLE SCLEROSIS
     Dosage: UNK, QD
     Route: 048
  2. TECFIDERA [Suspect]
     Active Substance: DIMETHYL FUMARATE
     Indication: PRODUCT USED FOR UNKNOWN INDICATION
     Dosage: UNK
     Route: 065

REACTIONS (11)
  - Neoplasm skin [Recovered/Resolved]
  - Presyncope [Not Recovered/Not Resolved]
  - Feeling hot [Not Recovered/Not Resolved]
  - Melanocytic naevus [Recovered/Resolved]
  - Tinnitus [Not Recovered/Not Resolved]
  - Neuralgia [Not Recovered/Not Resolved]
  - Nausea [Recovered/Resolved]
  - Urinary incontinence [Not Recovered/Not Resolved]
  - Pain in extremity [Not Recovered/Not Resolved]
  - Concomitant disease aggravated [Recovered/Resolved]
  - Haemangioma of skin [Not Recovered/Not Resolved]

NARRATIVE: CASE EVENT DATE: 20170901
